FAERS Safety Report 21593375 (Version 1)
Quarter: 2022Q4

REPORT INFORMATION
  Report Type: Spontaneous
  Country: CA (occurrence: CA)
  Receive Date: 20221114
  Receipt Date: 20221114
  Transmission Date: 20230113
  Serious: Yes (Hospitalization, Other)
  Sender: FDA-Public Use
  Company Number: CA-SUN PHARMACEUTICAL INDUSTRIES LTD-2022R1-363442

PATIENT
  Age: 4 Decade
  Sex: Female

DRUGS (5)
  1. PREDNISONE [Suspect]
     Active Substance: PREDNISONE
     Indication: Thrombocytopenia
     Dosage: 1 MILLIGRAM/KILOGRAM
     Route: 065
  2. CYCLOPHOSPHAMIDE [Suspect]
     Active Substance: CYCLOPHOSPHAMIDE
     Indication: Thrombocytopenia
     Dosage: 1.3 GRAM (GRADUAL TAPER MONTHLY)
     Route: 065
  3. ELTROMBOPAG [Concomitant]
     Active Substance: ELTROMBOPAG
     Indication: Thrombocytopenia
     Route: 065
  4. RITUXIMAB [Concomitant]
     Active Substance: RITUXIMAB
     Indication: Thrombocytopenia
     Dosage: 1000 MILLIGRAM (1ST DOSE)
     Route: 065
  5. RITUXIMAB [Concomitant]
     Active Substance: RITUXIMAB
     Dosage: 1000 MILLIGRAM (2ND DOSE)
     Route: 065

REACTIONS (4)
  - Urticaria [Unknown]
  - Epistaxis [Unknown]
  - Purpura [Recovered/Resolved]
  - Upper gastrointestinal haemorrhage [Recovered/Resolved]
